FAERS Safety Report 7472910-2 (Version None)
Quarter: 2011Q2

REPORT INFORMATION
  Report Type: 
  Country: None (occurrence: None)
  Receive Date: 20110511
  Receipt Date: 20110428
  Transmission Date: 20111010
  Serious: Yes (Hospitalization, Other)
  Sender: FDA-Public Use
  Company Number: US-CELGENEUS-163-21880-11043635

PATIENT
  Age: 83 Year
  Sex: Female
  Weight: 78.5 kg

DRUGS (5)
  1. METOPROLOL SUCCINATE [Concomitant]
     Route: 065
  2. REVLIMID [Suspect]
     Indication: MULTIPLE MYELOMA
     Dosage: 25 MILLIGRAM
     Route: 048
     Dates: start: 20110207, end: 20110413
  3. VELCADE [Suspect]
     Indication: MULTIPLE MYELOMA
     Dosage: 1.3 MILLIGRAM/SQ. METER
     Dates: start: 20110207, end: 20110411
  4. ASPIRIN [Concomitant]
     Route: 065
     Dates: start: 20110207
  5. DEXAMETHASONE [Suspect]
     Indication: MULTIPLE MYELOMA
     Dosage: 20 MILLIGRAM
     Route: 048
     Dates: start: 20110207, end: 20110412

REACTIONS (2)
  - DIZZINESS [None]
  - INTERNATIONAL NORMALISED RATIO DECREASED [None]
